FAERS Safety Report 9106601 (Version 1)
Quarter: 2013Q1

REPORT INFORMATION
  Report Type: Spontaneous
  Country: US (occurrence: US)
  Receive Date: 20130221
  Receipt Date: 20130221
  Transmission Date: 20140127
  Serious: Yes (Other)
  Sender: FDA-Public Use
  Company Number: PHEH2013US004184

PATIENT
  Sex: Male

DRUGS (3)
  1. EXFORGE [Suspect]
     Indication: HYPERTENSION
     Dosage: 60 MG VALS AND 5 MG AMLO
  2. NEURONTIN [Suspect]
     Indication: PAIN IN EXTREMITY
     Dosage: UNK UKN, UNK
  3. AVONEX [Concomitant]
     Indication: MULTIPLE SCLEROSIS
     Dosage: UNK UKN, UNK

REACTIONS (1)
  - Diabetes mellitus [Unknown]
